FAERS Safety Report 9486899 (Version 5)
Quarter: 2014Q3

REPORT INFORMATION
  Report Type: Report from Study
  Country: CA (occurrence: CA)
  Receive Date: 20130829
  Receipt Date: 20140711
  Transmission Date: 20150326
  Serious: Yes (Hospitalization, Other)
  Sender: FDA-Public Use
  Company Number: CA-JNJFOC-20130811394

PATIENT
  Age: 57 Year
  Sex: Female
  Weight: 97.07 kg

DRUGS (2)
  1. METHOTREXATE [Suspect]
     Active Substance: METHOTREXATE
     Indication: PRODUCT USED FOR UNKNOWN INDICATION
     Route: 065
  2. STELARA [Suspect]
     Active Substance: USTEKINUMAB
     Indication: PSORIASIS
     Route: 058
     Dates: start: 201212

REACTIONS (2)
  - Thrombotic stroke [Not Recovered/Not Resolved]
  - Ovarian cancer [Unknown]

NARRATIVE: CASE EVENT DATE: 20130713
